FAERS Safety Report 7877792-2 (Version None)
Quarter: 2011Q4

REPORT INFORMATION
  Report Type: 
  Country: None (occurrence: None)
  Receive Date: 20111031
  Receipt Date: 20111031
  Transmission Date: 20120403
  Serious: Yes (Other)
  Sender: FDA-Public Use
  Company Number: None

PATIENT
  Age: 55 Year
  Sex: Female
  Weight: 44.452 kg

DRUGS (1)
  1. REMICADE [Suspect]
     Indication: CROHN'S DISEASE
     Dosage: 225 MG
     Route: 041
     Dates: start: 20111011, end: 20111011

REACTIONS (2)
  - MUSCULOSKELETAL STIFFNESS [None]
  - SERUM SICKNESS [None]
